FAERS Safety Report 12621007 (Version 1)
Quarter: 2016Q3

REPORT INFORMATION
  Report Type: Spontaneous
  Country: US (occurrence: None)
  Receive Date: 20160803
  Receipt Date: 20160803
  Transmission Date: 20161109
  Serious: Yes (Other)
  Sender: FDA-Public Use
  Company Number: None

PATIENT
  Age: 67 Year
  Sex: Male

DRUGS (2)
  1. PRALUENT [Suspect]
     Active Substance: ALIROCUMAB
     Indication: HYPERLIPIDAEMIA
     Route: 058
     Dates: start: 20160429, end: 20160802
  2. PRALUENT [Suspect]
     Active Substance: ALIROCUMAB
     Indication: CORONARY ARTERY DISEASE
     Route: 058
     Dates: start: 20160429, end: 20160802

REACTIONS (8)
  - Balance disorder [None]
  - Scab [None]
  - Sleep disorder [None]
  - Dizziness [None]
  - Chondropathy [None]
  - Headache [None]
  - Discomfort [None]
  - Skin disorder [None]

NARRATIVE: CASE EVENT DATE: 20160802
